FAERS Safety Report 6085424-1 (Version None)
Quarter: 2009Q1

REPORT INFORMATION
  Report Type: 
  Country: None (occurrence: None)
  Receive Date: 20090217
  Receipt Date: 20081014
  Transmission Date: 20090719
  Serious: No
  Sender: FDA-Public Use
  Company Number: WAES 0810USA04989

PATIENT
  Sex: Female

DRUGS (2)
  1. ZOLINZA [Suspect]
     Indication: T-CELL LYMPHOMA
     Dosage: 400 MG/DAILY/PO
     Route: 048
     Dates: start: 20080815
  2. SYNTHROID [Concomitant]

REACTIONS (3)
  - ABDOMINAL PAIN UPPER [None]
  - FAECES DISCOLOURED [None]
  - NAUSEA [None]
